FAERS Safety Report 15057906 (Version 1)
Quarter: 2018Q2

REPORT INFORMATION
  Report Type: Spontaneous
  Country: US (occurrence: US)
  Receive Date: 20180625
  Receipt Date: 20180625
  Transmission Date: 20180711
  Serious: No
  Sender: FDA-Public Use
  Company Number: US-GLENMARK PHARMACEUTICALS-2018GMK033790

PATIENT

DRUGS (2)
  1. MUPIROCIN. [Suspect]
     Active Substance: MUPIROCIN
     Indication: POSTOPERATIVE CARE
  2. MUPIROCIN. [Suspect]
     Active Substance: MUPIROCIN
     Indication: WOUND TREATMENT
     Dosage: UNK; 1 TIME APPLICATION
     Route: 061
     Dates: start: 20180314

REACTIONS (4)
  - Application site pain [Recovered/Resolved]
  - Wound [Recovered/Resolved]
  - Product use in unapproved indication [Unknown]
  - Application site erythema [Recovered/Resolved]

NARRATIVE: CASE EVENT DATE: 20180314
